FAERS Safety Report 9439897 (Version 1)
Quarter: 2013Q3

REPORT INFORMATION
  Report Type: Report from Study
  Country: CA (occurrence: CA)
  Receive Date: 20130805
  Receipt Date: 20130805
  Transmission Date: 20140515
  Serious: Yes (Hospitalization)
  Sender: FDA-Public Use
  Company Number: CA-JNJFOC-20130718345

PATIENT
  Age: 24 Year
  Sex: Male
  Weight: 50 kg

DRUGS (2)
  1. REMICADE [Suspect]
     Indication: CROHN^S DISEASE
     Route: 042
     Dates: start: 20120620
  2. PENTASA [Concomitant]
     Route: 065

REACTIONS (2)
  - Colectomy [Recovering/Resolving]
  - Fistula [Recovering/Resolving]
